FAERS Safety Report 16285356 (Version 2)
Quarter: 2019Q2

REPORT INFORMATION
  Report Type: Spontaneous
  Country: US (occurrence: US)
  Receive Date: 20190508
  Receipt Date: 20190610
  Transmission Date: 20190711
  Serious: Yes (Hospitalization)
  Sender: FDA-Public Use
  Company Number: US-BAYER-2019-091615

PATIENT
  Age: 23 Year
  Sex: Female
  Weight: 111.1 kg

DRUGS (2)
  1. MIRENA [Suspect]
     Active Substance: LEVONORGESTREL
     Indication: CONTRACEPTION
     Dosage: 20 MCG/24HR, CONT
     Route: 015
     Dates: start: 201804
  2. MIRENA [Suspect]
     Active Substance: LEVONORGESTREL

REACTIONS (7)
  - Menstruation irregular [None]
  - Dizziness [None]
  - Headache [None]
  - Mood swings [None]
  - Pelvic pain [Not Recovered/Not Resolved]
  - Constipation [None]
  - Adverse event [None]

NARRATIVE: CASE EVENT DATE: 20180508
